FAERS Safety Report 7810089-5 (Version None)
Quarter: 2011Q4

REPORT INFORMATION
  Report Type: 
  Country: None (occurrence: None)
  Receive Date: 20111012
  Receipt Date: 20111004
  Transmission Date: 20120403
  Serious: Yes (Other)
  Sender: FDA-Public Use
  Company Number: PHEH2011US05919

PATIENT
  Sex: Female

DRUGS (10)
  1. CLONIDINE HCL [Suspect]
     Dosage: 10 MG, BID
  2. VITAMIN D [Concomitant]
     Dosage: 1000 IU, QD
  3. PROZAC [Concomitant]
     Dosage: 40 MG, QD
  4. DIAZEPAM [Concomitant]
     Dosage: 10 MG, TID
  5. GILENYA [Suspect]
     Dosage: 0.5 MG, QD
     Route: 048
  6. LISINOPRIL [Suspect]
     Dosage: 10 MG, BID
  7. DYAZIDE [Concomitant]
     Dosage: 37.5/25 MG, UNK
  8. AMITIZA [Concomitant]
     Dosage: 24 U, QD
  9. LEVOTHYROXINE SODIUM [Suspect]
     Dosage: 300 MG, BID
     Route: 048
  10. CARDIZEM LA [Suspect]
     Dosage: UNK UKN, UNK

REACTIONS (2)
  - ATRIOVENTRICULAR BLOCK [None]
  - BLOOD PRESSURE INCREASED [None]
